FAERS Safety Report 14336649 (Version 1)
Quarter: 2017Q4

REPORT INFORMATION
  Report Type: Spontaneous
  Country: BR (occurrence: BR)
  Receive Date: 20171229
  Receipt Date: 20171229
  Transmission Date: 20180321
  Serious: Yes (Other)
  Sender: FDA-Public Use
  Company Number: PHHY2017BR191227

PATIENT

DRUGS (6)
  1. PREDNISONE. [Concomitant]
     Active Substance: PREDNISONE
     Indication: PROSTATE CANCER METASTATIC
  2. FILGRASTIM [Suspect]
     Active Substance: FILGRASTIM
     Indication: PROPHYLAXIS
     Dosage: UNK
     Route: 065
  3. PREDNISONE. [Concomitant]
     Active Substance: PREDNISONE
     Indication: HORMONE-REFRACTORY PROSTATE CANCER
     Dosage: UNK
     Route: 065
  4. CIPROFLOXACIN. [Suspect]
     Active Substance: CIPROFLOXACIN
     Indication: PROPHYLAXIS
     Dosage: 1000 MG, UNK (ON DAYS 5 TO 12)
     Route: 065
  5. CABAZITAXEL [Concomitant]
     Active Substance: CABAZITAXEL
     Indication: HORMONE-REFRACTORY PROSTATE CANCER
     Dosage: 25 MG/M2, UNK (ON DAY 1 EVERY 21 DAYS)
     Route: 065
  6. CABAZITAXEL [Concomitant]
     Active Substance: CABAZITAXEL
     Indication: PROSTATE CANCER METASTATIC

REACTIONS (1)
  - Febrile neutropenia [Unknown]
